FAERS Safety Report 12560136 (Version 1)
Quarter: 2016Q3

REPORT INFORMATION
  Report Type: Spontaneous
  Country: US (occurrence: None)
  Receive Date: 20160714
  Receipt Date: 20160714
  Transmission Date: 20161109
  Serious: Yes (Life-Threatening)
  Sender: FDA-Public Use
  Company Number: None

PATIENT
  Age: 71 Year
  Sex: Male
  Weight: 136.3 kg

DRUGS (1)
  1. VANCOMYCIN [Suspect]
     Active Substance: VANCOMYCIN
     Indication: CELLULITIS
     Route: 042
     Dates: start: 20160411, end: 20160411

REACTIONS (5)
  - Respiratory distress [None]
  - Tachycardia [None]
  - Urticaria [None]
  - Pruritus [None]
  - Respiratory depression [None]

NARRATIVE: CASE EVENT DATE: 20160411
